FAERS Safety Report 20955280 (Version 1)
Quarter: 2022Q2

REPORT INFORMATION
  Report Type: Other
  Country: GB (occurrence: GB)
  Receive Date: 20220614
  Receipt Date: 20220614
  Transmission Date: 20220720
  Serious: Yes (Other)
  Sender: FDA-Public Use
  Company Number: None

PATIENT
  Age: 91 Year
  Sex: Female
  Weight: 76 kg

DRUGS (22)
  1. SERTRALINE [Suspect]
     Active Substance: SERTRALINE HYDROCHLORIDE
     Indication: Product used for unknown indication
     Dosage: 100 MILLIGRAM
     Route: 065
     Dates: start: 20220525
  2. AMOXICILLIN [Concomitant]
     Active Substance: AMOXICILLIN
     Indication: Product used for unknown indication
     Dosage: 1 DOSAGE FORM, TID (TAKE ONE 3 TIMES/DAY FOR 7 DAYS IF NEEDED FOR)
     Route: 065
     Dates: start: 20220220
  3. UMECLIDINIUM BROMIDE\VILANTEROL TRIFENATATE [Concomitant]
     Active Substance: UMECLIDINIUM BROMIDE\VILANTEROL TRIFENATATE
     Indication: Product used for unknown indication
     Dosage: UNK (1 ACTUATION)
     Route: 065
     Dates: start: 20220220
  4. BUMETANIDE [Concomitant]
     Active Substance: BUMETANIDE
     Indication: Product used for unknown indication
     Dosage: 1 TABLET (1DF)
     Route: 065
     Dates: start: 20220220
  5. CARBOMER [Concomitant]
     Active Substance: CARBOMER
     Indication: Product used for unknown indication
     Dosage: 1 DOSAGE FORM (1 DROP)
     Route: 065
     Dates: start: 20220408, end: 20220414
  6. CETRABEN EMOLLIENT BATH ADDITIVE [Concomitant]
     Indication: Product used for unknown indication
     Dosage: 1 DOSAGE FORM (1 APPLICATION)
     Route: 065
     Dates: start: 20220220
  7. COCODAMOL [Concomitant]
     Active Substance: ACETAMINOPHEN\CODEINE PHOSPHATE
     Indication: Product used for unknown indication
     Dosage: 1-2 TABLET
     Route: 065
     Dates: start: 20220220
  8. COTRIMOXAZOLE [Concomitant]
     Active Substance: SULFAMETHOXAZOLE\TRIMETHOPRIM
     Indication: Product used for unknown indication
     Dosage: TAKE TWO TABLETS THREE TIMES A WEEK (MON, WED A...
     Route: 065
     Dates: start: 20220525
  9. CHOLECALCIFEROL [Concomitant]
     Active Substance: CHOLECALCIFEROL
     Indication: Product used for unknown indication
     Dosage: 1 DOSAGE FORM (1 CAPSULE)
     Route: 065
     Dates: start: 20220409, end: 20220414
  10. CHOLECALCIFEROL [Concomitant]
     Active Substance: CHOLECALCIFEROL
     Indication: Product used for unknown indication
     Dosage: 1 DOSAGE FORM, QD
     Route: 065
     Dates: start: 20220220
  11. GLYCERIN [Concomitant]
     Active Substance: GLYCERIN
     Indication: Product used for unknown indication
     Dosage: UNK, STAT DOSE
     Route: 065
     Dates: start: 20220521, end: 20220522
  12. POLYETHYLENE GLYCOL 3350\POTASSIUM CHLORIDE\SODIUM BICARBONATE\SODIUM [Concomitant]
     Active Substance: POLYETHYLENE GLYCOL 3350\POTASSIUM CHLORIDE\SODIUM BICARBONATE\SODIUM CHLORIDE
     Indication: Product used for unknown indication
     Dosage: UNK, PRN (TAKE TWO SACHETS TWICE A DAY AS REQUIRED FOR CO)
     Route: 065
     Dates: start: 20220523, end: 20220524
  13. POLYETHYLENE GLYCOLS [Concomitant]
     Active Substance: POLYETHYLENE GLYCOLS
     Indication: Product used for unknown indication
     Dosage: 1 DOSAGE FORM (1 SACHET)
     Route: 065
     Dates: start: 20220408, end: 20220414
  14. OMEPRAZOLE [Concomitant]
     Active Substance: OMEPRAZOLE
     Indication: Product used for unknown indication
     Dosage: 1 CAPSULE
     Route: 065
     Dates: start: 20220220
  15. PREDNISOLONE [Concomitant]
     Active Substance: PREDNISOLONE
     Indication: Product used for unknown indication
     Dosage: 6 DAILY TAKEN ALL TOGETHER FOR 5 DAYS IF NEEDED...
     Route: 065
     Dates: start: 20220220
  16. RIVAROXABAN [Concomitant]
     Active Substance: RIVAROXABAN
     Indication: Product used for unknown indication
     Dosage: 1 DOSAGE FORM (1 TABLET)
     Route: 065
     Dates: start: 20220220
  17. SENNA [Concomitant]
     Active Substance: SENNA LEAF\SENNOSIDES\SENNOSIDES A AND B
     Indication: Product used for unknown indication
     Dosage: 2 DOSAGE FORM (2 TABLET)
     Route: 065
     Dates: start: 20220408, end: 20220414
  18. SERTRALINE [Concomitant]
     Active Substance: SERTRALINE HYDROCHLORIDE
     Indication: Product used for unknown indication
     Dosage: 1 DOSAGE FORM (1 TABLET )
     Route: 065
     Dates: start: 20220220, end: 20220525
  19. TERBUTALINE [Concomitant]
     Active Substance: TERBUTALINE
     Indication: Product used for unknown indication
     Dosage: 1 ACTUATION
     Route: 065
     Dates: start: 20220220
  20. TRIMETHOPRIM [Concomitant]
     Active Substance: TRIMETHOPRIM
     Indication: Product used for unknown indication
     Dosage: 1 DOSAGE FORM, BID
     Route: 065
     Dates: start: 20220525
  21. CARBOMER [Concomitant]
     Active Substance: CARBOMER
     Indication: Product used for unknown indication
     Dosage: UNK, PRN (1 DROP 3-4 TIMES A DAY AS REQUIRED)
     Route: 065
     Dates: start: 20220220
  22. VORTIOXETINE [Concomitant]
     Active Substance: VORTIOXETINE
     Indication: Product used for unknown indication
     Dosage: 1 DOSAGE FORM, QD
     Route: 065
     Dates: start: 20220525

REACTIONS (1)
  - Electrocardiogram QT prolonged [Recovering/Resolving]

NARRATIVE: CASE EVENT DATE: 20220527
